FAERS Safety Report 10494768 (Version 3)
Quarter: 2015Q2

REPORT INFORMATION
  Report Type: Spontaneous
  Country: US (occurrence: US)
  Receive Date: 20141003
  Receipt Date: 20150626
  Transmission Date: 20150821
  Serious: Yes (Other)
  Sender: FDA-Public Use
  Company Number: US-UCBSA-2014013070

PATIENT
  Sex: Female

DRUGS (13)
  1. LINACLOTIDE [Concomitant]
     Active Substance: LINACLOTIDE
     Indication: PRODUCT USED FOR UNKNOWN INDICATION
     Dosage: 290 ?G, UNK
     Route: 048
  2. LYRICA [Concomitant]
     Active Substance: PREGABALIN
     Indication: PRODUCT USED FOR UNKNOWN INDICATION
     Dosage: 100 MG, 3X/DAY (TID)
  3. PROMETHAZINE HYDROCHLORIDE. [Concomitant]
     Active Substance: PROMETHAZINE HYDROCHLORIDE
     Dosage: 25 MG, 3X/DAY (TID) 30 TABLETS X 3
  4. OMEPRAZOLE. [Concomitant]
     Active Substance: OMEPRAZOLE
     Indication: PRODUCT USED FOR UNKNOWN INDICATION
     Dosage: 25 MG, 2X/DAY (BID)
     Route: 048
  5. TRAMADOL HYDROCHLORIDE. [Concomitant]
     Active Substance: TRAMADOL HYDROCHLORIDE
     Indication: PAIN
     Dosage: 1, 3 TIMES DAILY
     Route: 048
  6. BACLOFEN. [Concomitant]
     Active Substance: BACLOFEN
     Indication: PRODUCT USED FOR UNKNOWN INDICATION
     Dosage: 10 MG 90 TABLETS X 3
  7. LEVOTHYROXINE [Concomitant]
     Active Substance: LEVOTHYROXINE
     Indication: PRODUCT USED FOR UNKNOWN INDICATION
     Dosage: 25 ?G, UNK
  8. ACYCLOVIR. [Concomitant]
     Active Substance: ACYCLOVIR
     Indication: PRODUCT USED FOR UNKNOWN INDICATION
     Dosage: 400 MG, UNK
     Route: 048
  9. KEPPRA XR [Suspect]
     Active Substance: LEVETIRACETAM
     Indication: SEIZURE
     Dosage: 500 MG, 2X/DAY (BID)
  10. SPIRONOLACTONE. [Concomitant]
     Active Substance: SPIRONOLACTONE
     Indication: PRODUCT USED FOR UNKNOWN INDICATION
     Dosage: 25 MG, 1-2 QD, 60 TABLETES X 2
  11. BUSPIRONE [Concomitant]
     Active Substance: BUSPIRONE HYDROCHLORIDE
     Indication: PRODUCT USED FOR UNKNOWN INDICATION
     Dosage: 10 MG, 2X/DAY (BID)
     Route: 048
  12. NUVIGIL [Concomitant]
     Active Substance: ARMODAFINIL
     Indication: PRODUCT USED FOR UNKNOWN INDICATION
     Dosage: UNK
     Route: 048
  13. MELOXICAM. [Concomitant]
     Active Substance: MELOXICAM
     Indication: PRODUCT USED FOR UNKNOWN INDICATION
     Route: 048

REACTIONS (13)
  - Peroneal nerve palsy [Not Recovered/Not Resolved]
  - Inappropriate schedule of drug administration [Unknown]
  - Pancreatitis chronic [Not Recovered/Not Resolved]
  - Irritable bowel syndrome [Not Recovered/Not Resolved]
  - Pain [Not Recovered/Not Resolved]
  - Seizure [Not Recovered/Not Resolved]
  - Varices oesophageal [Not Recovered/Not Resolved]
  - Sleep apnoea syndrome [Not Recovered/Not Resolved]
  - Urinary retention [Not Recovered/Not Resolved]
  - Myasthenia gravis [Not Recovered/Not Resolved]
  - Hypothyroidism [Not Recovered/Not Resolved]
  - Constipation [Not Recovered/Not Resolved]
  - Cirrhosis alcoholic [Not Recovered/Not Resolved]
